FAERS Safety Report 25202803 (Version 1)
Quarter: 2025Q2

REPORT INFORMATION
  Report Type: Spontaneous
  Country: CH (occurrence: CH)
  Receive Date: 20250416
  Receipt Date: 20250416
  Transmission Date: 20250717
  Serious: Yes (Other)
  Sender: PFIZER
  Company Number: None

PATIENT
  Age: 3 Year
  Sex: Male
  Weight: 17 kg

DRUGS (37)
  1. VINCRISTINE SULFATE [Suspect]
     Active Substance: VINCRISTINE SULFATE
     Indication: Burkitt^s lymphoma
     Route: 042
     Dates: start: 20171225, end: 20171225
  2. VINCRISTINE SULFATE [Suspect]
     Active Substance: VINCRISTINE SULFATE
     Route: 042
     Dates: start: 20180122, end: 20180122
  3. DOXORUBICIN HYDROCHLORIDE [Suspect]
     Active Substance: DOXORUBICIN HYDROCHLORIDE
     Indication: Burkitt^s lymphoma
     Dosage: 16 MG, 1X/DAY
     Route: 041
     Dates: start: 20180125, end: 20180126
  4. CYTARABINE [Suspect]
     Active Substance: CYTARABINE
     Indication: Burkitt^s lymphoma
     Route: 039
     Dates: start: 20171225, end: 20171229
  5. CYTARABINE [Suspect]
     Active Substance: CYTARABINE
     Dates: start: 20171225, end: 20171229
  6. CYTARABINE [Suspect]
     Active Substance: CYTARABINE
     Dosage: 100 MG, ALTERNATE DAY
     Route: 037
     Dates: start: 20180123, end: 20180127
  7. PIPERACILLIN SODIUM\TAZOBACTAM SODIUM [Suspect]
     Active Substance: PIPERACILLIN SODIUM\TAZOBACTAM SODIUM
     Indication: Antibiotic prophylaxis
     Dates: start: 20171221, end: 20171228
  8. PIPERACILLIN SODIUM\TAZOBACTAM SODIUM [Suspect]
     Active Substance: PIPERACILLIN SODIUM\TAZOBACTAM SODIUM
     Route: 042
     Dates: start: 20180101, end: 20180118
  9. ESOMEPRAZOLE MAGNESIUM [Suspect]
     Active Substance: ESOMEPRAZOLE MAGNESIUM
     Dosage: 15 MG, 1X/DAY
     Route: 048
     Dates: start: 20180122, end: 20180201
  10. MORPHINE [Suspect]
     Active Substance: MORPHINE
     Dosage: 3 MG, 1X/DAY
     Route: 040
     Dates: start: 20180128
  11. NYSTATIN [Suspect]
     Active Substance: NYSTATIN
     Indication: Antifungal prophylaxis
     Dosage: 1 DF, 1X/DAY
     Route: 048
     Dates: start: 20180122, end: 20180131
  12. NYSTATIN [Suspect]
     Active Substance: NYSTATIN
     Route: 048
     Dates: start: 20180122, end: 20180131
  13. CYCLOPHOSPHAMIDE [Suspect]
     Active Substance: CYCLOPHOSPHAMIDE
     Indication: Burkitt^s lymphoma
     Dosage: 130 MG, 2X/DAY
     Route: 041
     Dates: start: 20180124, end: 20180125
  14. CYCLOPHOSPHAMIDE [Suspect]
     Active Substance: CYCLOPHOSPHAMIDE
     Dosage: 130 MG, 1X/DAY OVER 15 MINUTES
     Route: 041
     Dates: start: 20180126, end: 20180126
  15. AMLODIPINE [Suspect]
     Active Substance: AMLODIPINE BESYLATE
     Dosage: 0.7 MG, 1X/DAY
     Route: 048
     Dates: start: 20171216, end: 20180201
  16. ACETAMINOPHEN [Suspect]
     Active Substance: ACETAMINOPHEN
     Indication: Antipyresis
     Dosage: 200 MG, 1X/DAY
     Route: 042
  17. METHOTREXATE [Suspect]
     Active Substance: METHOTREXATE
     Indication: Burkitt^s lymphoma
     Dosage: 12 MG, 1X/DAY
     Route: 037
     Dates: start: 20171223, end: 20171223
  18. METHOTREXATE [Suspect]
     Active Substance: METHOTREXATE
     Route: 041
     Dates: start: 20171225, end: 20171225
  19. METHOTREXATE [Suspect]
     Active Substance: METHOTREXATE
     Route: 041
     Dates: start: 20180122, end: 20180122
  20. METHOTREXATE [Suspect]
     Active Substance: METHOTREXATE
     Dosage: 12 MG, ALTERNATE DAY
     Route: 037
     Dates: start: 20180123, end: 20180127
  21. METHOTREXATE [Suspect]
     Active Substance: METHOTREXATE
     Route: 042
  22. METHYLPREDNISOLONE [Suspect]
     Active Substance: METHYLPREDNISOLONE
     Indication: Burkitt^s lymphoma
     Route: 037
     Dates: start: 20171225, end: 20171229
  23. METHYLPREDNISOLONE [Suspect]
     Active Substance: METHYLPREDNISOLONE
     Dosage: 8 MG, ALTERNATE DAY, ADMINISTERED FOR 3 DAYS: 23, 25 AND 27 JANUARY 2018
     Route: 037
     Dates: start: 20180123, end: 20180127
  24. DEXAMETHASONE [Suspect]
     Active Substance: DEXAMETHASONE
     Indication: Burkitt^s lymphoma
     Dosage: 2.2 MG, 1X/DAY
     Dates: start: 20171225, end: 20180101
  25. DEXAMETHASONE [Suspect]
     Active Substance: DEXAMETHASONE
     Dosage: 2 MG, 1X/DAY
     Route: 048
     Dates: start: 20180123, end: 20180130
  26. DEXAMETHASONE [Suspect]
     Active Substance: DEXAMETHASONE
     Dosage: 1 MG, 3X/DAY
     Dates: start: 20180128, end: 20180128
  27. DEXAMETHASONE [Suspect]
     Active Substance: DEXAMETHASONE
     Dosage: 0.5 MG, 3X/DAY
     Dates: start: 20180129, end: 20180129
  28. DEXAMETHASONE [Suspect]
     Active Substance: DEXAMETHASONE
     Dosage: 0.25 MG, 3X/DAY
     Dates: start: 20180130, end: 20180130
  29. BACTRIM [Suspect]
     Active Substance: SULFAMETHOXAZOLE\TRIMETHOPRIM
     Indication: Antibiotic prophylaxis
     Dosage: 35 MG, 1X/DAY
     Route: 048
     Dates: start: 20180128, end: 20180201
  30. BACTRIM [Suspect]
     Active Substance: SULFAMETHOXAZOLE\TRIMETHOPRIM
  31. CEFEPIME [Suspect]
     Active Substance: CEFEPIME HYDROCHLORIDE
     Indication: Antibiotic prophylaxis
     Dosage: 750 MG, 1X/DAY
     Route: 041
     Dates: start: 20180128, end: 20180204
  32. CASPOFUNGIN [Suspect]
     Active Substance: CASPOFUNGIN
     Indication: Candida infection
     Dosage: 30 MG, 1X/DAY
     Route: 042
     Dates: start: 20180101, end: 20180201
  33. ZOFRAN [Suspect]
     Active Substance: ONDANSETRON HYDROCHLORIDE
     Indication: Prophylaxis of nausea and vomiting
     Dosage: 3.5 MG, 1X/DAY
     Route: 048
     Dates: start: 20180122, end: 20180122
  34. ETOPOSIDE [Concomitant]
     Active Substance: ETOPOSIDE
     Indication: Burkitt^s lymphoma
     Dates: start: 20171225
  35. HYDROCORTISONE [Concomitant]
     Active Substance: HYDROCORTISONE
     Dosage: 6 MG, 1X/DAY
     Route: 041
  36. IFOSFAMIDE [Concomitant]
     Active Substance: IFOSFAMIDE
     Indication: Burkitt^s lymphoma
     Dates: start: 20171225
  37. VANCOMYCIN [Concomitant]
     Active Substance: VANCOMYCIN
     Indication: Bacteraemia
     Route: 041
     Dates: start: 20171229, end: 20171231

REACTIONS (2)
  - Toxic epidermal necrolysis [Recovering/Resolving]
  - Rash macular [Recovering/Resolving]

NARRATIVE: CASE EVENT DATE: 20180130
